FAERS Safety Report 16877860 (Version 2)
Quarter: 2019Q4

REPORT INFORMATION
  Report Type: Spontaneous
  Country: FR (occurrence: FR)
  Receive Date: 20191002
  Receipt Date: 20191218
  Transmission Date: 20200122
  Serious: Yes (Hospitalization)
  Sender: FDA-Public Use
  Company Number: PHHY2019FR227162

PATIENT
  Age: 77 Year
  Sex: Female
  Weight: 76 kg

DRUGS (5)
  1. COTAREG [Suspect]
     Active Substance: HYDROCHLOROTHIAZIDE\VALSARTAN
     Indication: PRODUCT USED FOR UNKNOWN INDICATION
     Dosage: 80/12.5 MG, QD
     Route: 048
     Dates: start: 20190901, end: 20190923
  2. TAMOXIFENE [Concomitant]
     Active Substance: TAMOXIFEN
     Indication: MASTECTOMY
     Dosage: UNK
     Route: 065
  3. BISOPROLOL [Concomitant]
     Active Substance: BISOPROLOL
     Indication: PRODUCT USED FOR UNKNOWN INDICATION
     Dosage: 1.25 OT, QD
     Route: 065
     Dates: start: 2009
  4. ATORVASTATINE [Concomitant]
     Active Substance: ATORVASTATIN
     Indication: PRODUCT USED FOR UNKNOWN INDICATION
     Dosage: 20 MG, QD
     Route: 065
     Dates: start: 2009
  5. TRANXENE [Concomitant]
     Active Substance: CLORAZEPATE DIPOTASSIUM
     Indication: PRODUCT USED FOR UNKNOWN INDICATION
     Dosage: 5 MG, BID
     Route: 065
     Dates: start: 2009

REACTIONS (11)
  - Night sweats [Unknown]
  - Malaise [Unknown]
  - Cough [Unknown]
  - Tinnitus [Unknown]
  - Nausea [Unknown]
  - Decreased appetite [Unknown]
  - Malaise [Recovered/Resolved]
  - Fatigue [Unknown]
  - Abdominal pain [Unknown]
  - Palpitations [Unknown]
  - Loss of consciousness [Recovered/Resolved]

NARRATIVE: CASE EVENT DATE: 20190901
